FAERS Safety Report 9663112 (Version 1)
Quarter: 2013Q4

REPORT INFORMATION
  Report Type: Report from Study
  Country: DE (occurrence: DE)
  Receive Date: 20131101
  Receipt Date: 20131101
  Transmission Date: 20140711
  Serious: Yes (Hospitalization)
  Sender: FDA-Public Use
  Company Number: DE-ABBVIE-13P-062-1161680-00

PATIENT
  Age: 31 Year
  Sex: Female
  Weight: 52 kg

DRUGS (3)
  1. HUMIRA [Suspect]
     Indication: CROHN^S DISEASE
     Route: 058
     Dates: start: 20121213, end: 201304
  2. HUMIRA [Suspect]
     Route: 058
     Dates: start: 201305
  3. AZATHIOPRINE/6-MP [Concomitant]
     Indication: PRODUCT USED FOR UNKNOWN INDICATION

REACTIONS (2)
  - Intestinal stenosis [Unknown]
  - Crohn^s disease [Unknown]
